FAERS Safety Report 9612566 (Version 4)
Quarter: 2014Q1

REPORT INFORMATION
  Report Type: Report from Study
  Country: AR (occurrence: AR)
  Receive Date: 20131010
  Receipt Date: 20140114
  Transmission Date: 20141002
  Serious: Yes (Hospitalization, Other)
  Sender: FDA-Public Use
  Company Number: PHHY2013AR113764

PATIENT
  Age: 75 Year
  Sex: Female

DRUGS (1)
  1. EXFORGE D [Suspect]
     Indication: HYPERTENSION
     Dosage: 1.5 DF (160/10/25 MG), DAILY
     Route: 048
     Dates: start: 2012

REACTIONS (7)
  - Ulcer [Recovered/Resolved]
  - Blood pressure increased [Recovered/Resolved]
  - Weight increased [Unknown]
  - Arthralgia [Recovering/Resolving]
  - Blood potassium decreased [Recovered/Resolved]
  - Pollakiuria [Recovered/Resolved]
  - Wrong technique in drug usage process [Unknown]
